FAERS Safety Report 23074418 (Version 3)
Quarter: 2024Q1

REPORT INFORMATION
  Report Type: Spontaneous
  Country: US (occurrence: US)
  Receive Date: 20231017
  Receipt Date: 20240327
  Transmission Date: 20240410
  Serious: Yes (Other)
  Sender: FDA-Public Use
  Company Number: US-UCBSA-2023039791

PATIENT
  Sex: Female

DRUGS (7)
  1. BRIVIACT [Suspect]
     Active Substance: BRIVARACETAM
     Indication: Petit mal epilepsy
     Dosage: UNK
     Route: 048
     Dates: start: 2017
  2. BRIVIACT [Suspect]
     Active Substance: BRIVARACETAM
     Indication: Off label use
  3. BRIVIACT [Suspect]
     Active Substance: BRIVARACETAM
     Indication: Epilepsy
  4. VIMPAT [Suspect]
     Active Substance: LACOSAMIDE
     Indication: Petit mal epilepsy
     Dosage: UNK
     Route: 048
     Dates: end: 202303
  5. VIMPAT [Suspect]
     Active Substance: LACOSAMIDE
     Indication: Off label use
  6. VIMPAT [Suspect]
     Active Substance: LACOSAMIDE
     Indication: Epilepsy
  7. IRON [Concomitant]
     Active Substance: IRON
     Indication: Anaemia
     Dosage: UNK

REACTIONS (4)
  - Seizure [Recovering/Resolving]
  - Therapy cessation [Unknown]
  - Insurance issue [Unknown]
  - Off label use [Unknown]
